FAERS Safety Report 10020069 (Version 1)
Quarter: 2014Q1

REPORT INFORMATION
  Report Type: Spontaneous
  Country: US (occurrence: US)
  Receive Date: 20140318
  Receipt Date: 20140318
  Transmission Date: 20141002
  Serious: No
  Sender: FDA-Public Use
  Company Number: US-009507513-1403USA006207

PATIENT
  Sex: Female
  Weight: 102.72 kg

DRUGS (1)
  1. NEXPLANON [Suspect]
     Dosage: 1 STANDARD PACKAGE OF PF APPLI OF 1
     Route: 059
     Dates: start: 201305

REACTIONS (3)
  - Device breakage [Unknown]
  - Pain in extremity [Recovering/Resolving]
  - Discomfort [Unknown]
